FAERS Safety Report 9912003 (Version 1)
Quarter: 2014Q1

REPORT INFORMATION
  Report Type: Spontaneous
  Country: US (occurrence: US)
  Receive Date: 20140219
  Receipt Date: 20140219
  Transmission Date: 20141002
  Serious: Yes (Other)
  Sender: FDA-Public Use
  Company Number: US-MYLANLABS-PF-2013052743

PATIENT
  Sex: Female

DRUGS (1)
  1. EPIPEN JR [Suspect]
     Dosage: 0.15 MG

REACTIONS (2)
  - Accidental exposure to product [Not Recovered/Not Resolved]
  - Dizziness [Not Recovered/Not Resolved]
